FAERS Safety Report 6792785-4 (Version None)
Quarter: 2010Q2

REPORT INFORMATION
  Report Type: 
  Country: None (occurrence: None)
  Receive Date: 20100624
  Receipt Date: 20081010
  Transmission Date: 20101027
  Serious: No
  Sender: FDA-Public Use
  Company Number: US-PFIZER INC-2008085205

PATIENT
  Sex: Male

DRUGS (1)
  1. DIFLUCAN [Suspect]
     Route: 048
     Dates: start: 20081008

REACTIONS (3)
  - BURNING SENSATION [None]
  - ORAL DISCOMFORT [None]
  - VOMITING [None]
